FAERS Safety Report 22036093 (Version 1)
Quarter: 2023Q1

REPORT INFORMATION
  Report Type: Spontaneous
  Country: SA (occurrence: SA)
  Receive Date: 20230224
  Receipt Date: 20230224
  Transmission Date: 20230417
  Serious: Yes (Hospitalization, Other)
  Sender: FDA-Public Use
  Company Number: SA-RK PHARMA, INC-20230200014

PATIENT
  Age: 69 Year
  Sex: Male

DRUGS (5)
  1. DICLOFENAC POTASSIUM [Suspect]
     Active Substance: DICLOFENAC POTASSIUM
     Indication: Arthralgia
     Dosage: 50 MILLIGRAM
     Route: 030
  2. DICLOFENAC POTASSIUM [Suspect]
     Active Substance: DICLOFENAC POTASSIUM
     Indication: Osteoarthritis
  3. ALBUTEROL [Concomitant]
     Active Substance: ALBUTEROL
     Route: 030
  4. BUDESONIDE [Concomitant]
     Active Substance: BUDESONIDE
     Route: 045
  5. FORMOTEROL [Concomitant]
     Active Substance: FORMOTEROL
     Route: 042

REACTIONS (1)
  - Kounis syndrome [Recovered/Resolved]
